FAERS Safety Report 5743018-9 (Version None)
Quarter: 2008Q2

REPORT INFORMATION
  Report Type: 
  Country: None (occurrence: None)
  Receive Date: 20080515
  Receipt Date: 20080515
  Transmission Date: 20081010
  Serious: Yes (Other)
  Sender: FDA-Public Use
  Company Number: None

PATIENT
  Age: 47 Year
  Sex: Female
  Weight: 68.0396 kg

DRUGS (1)
  1. CHANTIX [Suspect]
     Indication: SMOKING CESSATION THERAPY
     Dosage: .05 FOR 7 DAYS TWICE A DAY PO, .10 REMAINDER OF TIME TWICE A DAY PO
     Route: 048
     Dates: start: 20070820, end: 20071023

REACTIONS (6)
  - ABNORMAL DREAMS [None]
  - APATHY [None]
  - DEPRESSION [None]
  - HYPERSOMNIA [None]
  - INSOMNIA [None]
  - NAUSEA [None]
